FAERS Safety Report 7337479-1 (Version None)
Quarter: 2011Q1

REPORT INFORMATION
  Report Type: 
  Country: None (occurrence: None)
  Receive Date: 20110308
  Receipt Date: 20110225
  Transmission Date: 20110831
  Serious: Yes (Hospitalization, Other)
  Sender: FDA-Public Use
  Company Number: US-BRISTOL-MYERS SQUIBB COMPANY-15592041

PATIENT
  Age: 56 Year
  Sex: Female
  Weight: 60 kg

DRUGS (12)
  1. CARBOPLATIN [Suspect]
     Indication: NON-SMALL CELL LUNG CANCER
     Route: 042
     Dates: start: 20101209, end: 20110210
  2. MULTI-VITAMIN [Concomitant]
     Route: 065
  3. COMPAZINE [Concomitant]
     Route: 065
  4. CETUXIMAB [Suspect]
     Indication: NON-SMALL CELL LUNG CANCER
     Dosage: INTERRUPTED ON 17FEB2011(70 DYS)
     Route: 042
     Dates: start: 20101209
  5. GEMCITABINE [Suspect]
     Indication: NON-SMALL CELL LUNG CANCER
     Route: 042
     Dates: start: 20101209, end: 20110210
  6. MINOCYCLINE HCL [Concomitant]
     Route: 048
  7. HYDROCHLOROTHIAZIDE [Concomitant]
     Route: 065
  8. FUROSEMIDE [Concomitant]
     Route: 065
  9. POTASSIUM [Concomitant]
     Route: 065
  10. METOPROLOL [Concomitant]
     Route: 065
  11. FOLIC ACID [Concomitant]
     Route: 048
  12. LISINOPRIL [Concomitant]
     Route: 065

REACTIONS (1)
  - HYPOTENSION [None]
